FAERS Safety Report 5227210-8 (Version None)
Quarter: 2007Q1

REPORT INFORMATION
  Report Type: 
  Country: None (occurrence: None)
  Receive Date: 20070202
  Receipt Date: 20070201
  Transmission Date: 20070707
  Serious: Yes (Other)
  Sender: FDA-Public Use
  Company Number: JP-JPN-A200605321

PATIENT
  Age: 73 Year
  Sex: Female

DRUGS (4)
  1. VALTREX [Suspect]
     Indication: DRUG USE FOR UNKNOWN INDICATION
     Route: 048
     Dates: start: 20061209, end: 20061209
  2. MEIACT [Suspect]
     Indication: LARYNGOPHARYNGITIS
     Route: 048
     Dates: start: 20061209, end: 20061209
  3. CHINESE MEDICATION [Suspect]
     Indication: BRONCHITIS
     Dosage: 3G THREE TIMES PER DAY
     Route: 048
     Dates: start: 20061209, end: 20061209
  4. CELESTONE [Suspect]
     Indication: RHINITIS
     Dosage: 1UNIT PER DAY
     Route: 048
     Dates: start: 20061209, end: 20061209

REACTIONS (3)
  - ABDOMINAL PAIN [None]
  - DIARRHOEA [None]
  - MELAENA [None]
